FAERS Safety Report 10983710 (Version 1)
Quarter: 2015Q2

REPORT INFORMATION
  Report Type: Spontaneous
  Country: CZ (occurrence: None)
  Receive Date: 20150401
  Receipt Date: 20150401
  Transmission Date: 20150821
  Serious: Yes (Hospitalization, Other)
  Sender: FDA-Public Use
  Company Number: CZ2015GSK039223

PATIENT
  Age: 49 Year
  Sex: Female

DRUGS (2)
  1. LAMIVUDINE (LAMIVUDINE) UNKNOWN [Suspect]
     Active Substance: LAMIVUDINE
     Indication: HEPATITIS B
     Dates: start: 2001
  2. RITUXIMAB [Suspect]
     Active Substance: RITUXIMAB
     Indication: LYMPHOPLASMACYTOID LYMPHOMA/IMMUNOCYTOMA
     Dosage: 13 CYC
     Dates: start: 200806, end: 200908

REACTIONS (6)
  - Hepatitis B [None]
  - Transplant dysfunction [None]
  - Drug resistance [None]
  - Acute hepatic failure [None]
  - Encephalopathy [None]
  - Hepatic necrosis [None]

NARRATIVE: CASE EVENT DATE: 20091001
